FAERS Safety Report 6241121-0 (Version None)
Quarter: 2009Q2

REPORT INFORMATION
  Report Type: 
  Country: None (occurrence: None)
  Receive Date: 20090623
  Receipt Date: 20090615
  Transmission Date: 20091009
  Serious: Yes (Life-Threatening, Other)
  Sender: FDA-Public Use
  Company Number: US-ELI_LILLY_AND_COMPANY-US200906004623

PATIENT
  Sex: Male
  Weight: 52.1 kg

DRUGS (3)
  1. SOMATROPIN [Suspect]
     Indication: DWARFISM
     Dosage: 2.8 MG, DAILY (1/D)
     Route: 058
     Dates: start: 20090201
  2. GEODON [Concomitant]
     Indication: DEPRESSION
  3. REMERON [Concomitant]
     Indication: DEPRESSION

REACTIONS (4)
  - ABNORMAL BEHAVIOUR [None]
  - ANOREXIA [None]
  - PERSONALITY DISORDER [None]
  - SUICIDE ATTEMPT [None]
